FAERS Safety Report 11713676 (Version 1)
Quarter: 2015Q4

REPORT INFORMATION
  Report Type: Spontaneous
  Country: US (occurrence: None)
  Receive Date: 20151106
  Receipt Date: 20151106
  Transmission Date: 20160304
  Serious: Yes (Hospitalization)
  Sender: FDA-Public Use
  Company Number: None

PATIENT
  Age: 6 Year
  Sex: Male
  Weight: 20.41 kg

DRUGS (2)
  1. HUMIRA [Suspect]
     Active Substance: ADALIMUMAB
     Indication: UVEITIS
     Dosage: 20 MG/.4 ML SYRINGE, SINGLE-USE PREFILLED SYRINGE, EVERY TWO WEEKS
     Dates: start: 20140530, end: 20150914
  2. MONTELUKAST [Concomitant]
     Active Substance: MONTELUKAST SODIUM

REACTIONS (3)
  - Staphylococcal infection [None]
  - Skin exfoliation [None]
  - Malaise [None]

NARRATIVE: CASE EVENT DATE: 20150926
